FAERS Safety Report 8487701-3 (Version None)
Quarter: 2012Q3

REPORT INFORMATION
  Report Type: 
  Country: None (occurrence: None)
  Receive Date: 20120705
  Receipt Date: 20120625
  Transmission Date: 20120928
  Serious: Yes (Hospitalization, Other)
  Sender: FDA-Public Use
  Company Number: DE-JNJFOC-20120520992

PATIENT
  Sex: Male

DRUGS (4)
  1. PALIPERIDONE [Suspect]
     Indication: SCHIZOPHRENIA, PARANOID TYPE
     Dosage: 100 - 150 MG
     Route: 030
     Dates: start: 20120316
  2. AKINETON [Concomitant]
     Indication: PARKINSONISM
     Route: 048
  3. AKINETON [Concomitant]
     Indication: SCHIZOPHRENIA, PARANOID TYPE
     Route: 048
  4. PALIPERIDONE [Suspect]
     Route: 030
     Dates: start: 20120523

REACTIONS (4)
  - PLEURAL EFFUSION [None]
  - PLEURISY [None]
  - THROMBOCYTOSIS [None]
  - IRON DEFICIENCY [None]
